FAERS Safety Report 11198722 (Version 1)
Quarter: 2015Q2

REPORT INFORMATION
  Report Type: Report from Study
  Country: FR (occurrence: None)
  Receive Date: 20150616
  Receipt Date: 20150616
  Transmission Date: 20150821
  Serious: Yes (Death, Other)
  Sender: FDA-Public Use
  Company Number: B0760480A

PATIENT
  Sex: Male

DRUGS (1)
  1. MARAVIROC (MARAVIROC) FILM-COATED TABLET [Suspect]
     Active Substance: MARAVIROC
     Indication: HIV INFECTION
     Route: 048
     Dates: start: 20091112

REACTIONS (3)
  - Diarrhoea [None]
  - Renal failure [None]
  - Hepatic failure [None]

NARRATIVE: CASE EVENT DATE: 20110707
